FAERS Safety Report 16983331 (Version 1)
Quarter: 2019Q4

REPORT INFORMATION
  Report Type: Other
  Country: SE (occurrence: SE)
  Receive Date: 20191101
  Receipt Date: 20191101
  Transmission Date: 20200122
  Serious: Yes (Death, Life-Threatening, Hospitalization)
  Sender: FDA-Public Use
  Company Number: SE-NOSTRUM LABORATORIES, INC.-2076327

PATIENT
  Age: 73 Year
  Sex: Female

DRUGS (3)
  1. ESCITALOPRAM [Interacting]
     Active Substance: ESCITALOPRAM OXALATE
     Route: 048
  2. ERYTHROMYCIN ETHYLSUCCINATE. [Concomitant]
     Active Substance: ERYTHROMYCIN ETHYLSUCCINATE
     Route: 048
  3. VENLAFAXINE HYDROCHLORIDE. [Suspect]
     Active Substance: VENLAFAXINE HYDROCHLORIDE
     Indication: MAJOR DEPRESSION
     Route: 048

REACTIONS (8)
  - Serotonin syndrome [Fatal]
  - Labelled drug-drug interaction medication error [Fatal]
  - Myocardial infarction [Fatal]
  - Hyperkalaemia [Unknown]
  - Acute kidney injury [Fatal]
  - Hypertensive crisis [Unknown]
  - Ventricular fibrillation [Fatal]
  - Cardiac arrest [Fatal]
